FAERS Safety Report 10654715 (Version 1)
Quarter: 2014Q4

REPORT INFORMATION
  Report Type: Spontaneous
  Country: FR (occurrence: FR)
  Receive Date: 20141216
  Receipt Date: 20141216
  Transmission Date: 20150529
  Serious: Yes (Other)
  Sender: FDA-Public Use
  Company Number: FR-ASTRAZENECA-2014SE95901

PATIENT
  Age: 3 Month
  Sex: Female
  Weight: 5 kg

DRUGS (4)
  1. MOPRAL [Suspect]
     Active Substance: OMEPRAZOLE SODIUM
     Indication: OESOPHAGITIS
     Route: 048
  2. POLYSILANE [Concomitant]
  3. PHOSPHALUGEL [Concomitant]
  4. MOPRAL [Suspect]
     Active Substance: OMEPRAZOLE SODIUM
     Indication: OESOPHAGEAL DISORDER
     Route: 048

REACTIONS (6)
  - Hypophagia [Unknown]
  - Drug ineffective [Unknown]
  - Weight decreased [Unknown]
  - Weight gain poor [Unknown]
  - Intentional product misuse [Unknown]
  - Product use issue [Not Recovered/Not Resolved]
